FAERS Safety Report 14478875 (Version 2)
Quarter: 2018Q1

REPORT INFORMATION
  Report Type: Spontaneous
  Country: US (occurrence: US)
  Receive Date: 20180202
  Receipt Date: 20180312
  Transmission Date: 20180509
  Serious: Yes (Other)
  Sender: FDA-Public Use
  Company Number: US-PFIZER INC-2018046627

PATIENT
  Sex: Female

DRUGS (1)
  1. METHOTREXATE SODIUM. [Suspect]
     Active Substance: METHOTREXATE SODIUM
     Indication: RHEUMATOID ARTHRITIS
     Dosage: UNK

REACTIONS (7)
  - Colour blindness [Unknown]
  - Vision blurred [Unknown]
  - Deafness [Unknown]
  - Dyspepsia [Unknown]
  - Visual impairment [Unknown]
  - Drug ineffective [Unknown]
  - Drug hypersensitivity [Unknown]
